FAERS Safety Report 7933960-2 (Version None)
Quarter: 2011Q4

REPORT INFORMATION
  Report Type: 
  Country: None (occurrence: None)
  Receive Date: 20111122
  Receipt Date: 20111114
  Transmission Date: 20120403
  Serious: Yes (Hospitalization, Other)
  Sender: FDA-Public Use
  Company Number: SG-PFIZER INC-2011277758

PATIENT
  Age: 43 Year
  Sex: Male
  Weight: 66 kg

DRUGS (9)
  1. LEVETIRACETAM [Concomitant]
  2. OXYCODONE [Concomitant]
  3. FENTANYL [Concomitant]
  4. SENNA [Concomitant]
  5. SUCRALFATE [Concomitant]
  6. MAGNESIUM TRISILICATE [Concomitant]
  7. CRIZOTINIB [Suspect]
     Dosage: 250 MG, 2X/DAY
     Dates: start: 20110912
  8. ONDANSETRON [Concomitant]
  9. ZOLEDRONIC ACID [Concomitant]

REACTIONS (4)
  - DIZZINESS [None]
  - VOMITING [None]
  - CENTRAL NERVOUS SYSTEM LESION [None]
  - NAUSEA [None]
